FAERS Safety Report 8968661 (Version 1)
Quarter: 2012Q4

REPORT INFORMATION
  Report Type: Report from Study
  Country: FR (occurrence: FR)
  Receive Date: 20121217
  Receipt Date: 20121217
  Transmission Date: 20130627
  Serious: Yes (Other)
  Sender: FDA-Public Use
  Company Number: FR-ROCHE-683285

PATIENT
  Sex: Female

DRUGS (2)
  1. RITUXIMAB [Suspect]
     Indication: RHEUMATOID ARTHRITIS
     Dosage: DOSE: 1 GRAM TWICE, FREQUENCY: CYCLE
     Route: 042
     Dates: start: 200605, end: 200901
  2. METHOTREXATE [Suspect]
     Indication: RHEUMATOID ARTHRITIS
     Route: 048
     Dates: start: 2001, end: 2009

REACTIONS (3)
  - Atypical pneumonia [Recovered/Resolved]
  - Pneumonia [Unknown]
  - Infection [Unknown]
